FAERS Safety Report 18387007 (Version 4)
Quarter: 2020Q4

REPORT INFORMATION
  Report Type: Report from Study
  Country: CO (occurrence: CO)
  Receive Date: 20201015
  Receipt Date: 20201118
  Transmission Date: 20210114
  Serious: Yes (Other)
  Sender: FDA-Public Use
  Company Number: NVSC2020CO260123

PATIENT
  Age: 63 Year
  Sex: Female
  Weight: 88 kg

DRUGS (4)
  1. ATORVASTATIN [Suspect]
     Active Substance: ATORVASTATIN
     Indication: PRODUCT USED FOR UNKNOWN INDICATION
     Dosage: UNK
     Route: 065
  2. KISQALI [Suspect]
     Active Substance: RIBOCICLIB
     Indication: BREAST CANCER METASTATIC
     Dosage: 200 MG, TID
     Route: 048
     Dates: start: 201803, end: 202004
  3. FEMARA [Suspect]
     Active Substance: LETROZOLE
     Indication: BREAST CANCER
     Dosage: 2.5 MG, QD
     Route: 048
     Dates: start: 201803
  4. PROPRANOLOL [Concomitant]
     Active Substance: PROPRANOLOL HYDROCHLORIDE
     Indication: HYPERTENSION
     Dosage: 50 MG, Q12H (STARTED 6 YEARS AGO)
     Route: 048

REACTIONS (21)
  - Hypersensitivity [Recovered/Resolved]
  - Neutrophil count abnormal [Unknown]
  - Eosinophil count abnormal [Unknown]
  - Pruritus [Recovered/Resolved]
  - Monocyte count abnormal [Unknown]
  - Red blood cell count abnormal [Unknown]
  - Bilirubin conjugated abnormal [Unknown]
  - Platelet count increased [Unknown]
  - Haemoglobin abnormal [Unknown]
  - Decreased immune responsiveness [Unknown]
  - Basophil count abnormal [Unknown]
  - Lymphocyte count abnormal [Unknown]
  - White blood cell count abnormal [Unknown]
  - Red cell distribution width increased [Unknown]
  - Haematocrit abnormal [Unknown]
  - Blood creatinine abnormal [Unknown]
  - Metastases to bone [Unknown]
  - Mean cell haemoglobin [Unknown]
  - Mean cell volume abnormal [Unknown]
  - Musculoskeletal chest pain [Recovered/Resolved]
  - Bone pain [Unknown]

NARRATIVE: CASE EVENT DATE: 202001
